FAERS Safety Report 20804246 (Version 6)
Quarter: 2022Q3

REPORT INFORMATION
  Report Type: Report from Study
  Country: FR (occurrence: None)
  Receive Date: 20220509
  Receipt Date: 20220714
  Transmission Date: 20221027
  Serious: Yes (Hospitalization)
  Sender: FDA-Public Use
  Company Number: FR-Eisai Medical Research-EC-2022-111752

PATIENT
  Age: 75 Year
  Sex: Male
  Weight: 74.5 kg

DRUGS (22)
  1. LENVATINIB [Suspect]
     Active Substance: LENVATINIB
     Indication: Oesophageal adenocarcinoma
     Route: 048
     Dates: start: 20211201, end: 20220209
  2. LENVATINIB [Suspect]
     Active Substance: LENVATINIB
     Indication: Adenocarcinoma gastric
     Route: 048
     Dates: start: 20220307, end: 20220317
  3. PEMBROLIZUMAB [Suspect]
     Active Substance: PEMBROLIZUMAB
     Indication: Oesophageal adenocarcinoma
     Route: 041
     Dates: start: 20211201, end: 20211201
  4. PEMBROLIZUMAB [Suspect]
     Active Substance: PEMBROLIZUMAB
     Indication: Adenocarcinoma gastric
     Route: 041
     Dates: start: 20220112, end: 20220112
  5. OXALIPLATIN [Suspect]
     Active Substance: OXALIPLATIN
     Indication: Oesophageal adenocarcinoma
     Dosage: DOSE UNKNOWN
     Route: 042
     Dates: start: 20211201, end: 20220112
  6. OXALIPLATIN [Suspect]
     Active Substance: OXALIPLATIN
     Indication: Adenocarcinoma gastric
  7. LEUCOVORIN [Suspect]
     Active Substance: LEUCOVORIN
     Indication: Oesophageal adenocarcinoma
     Dosage: DOSE UNKNOWN
     Route: 042
     Dates: start: 20211201, end: 20220126
  8. LEUCOVORIN [Suspect]
     Active Substance: LEUCOVORIN
     Indication: Adenocarcinoma gastric
     Dosage: DOSE UNKNOWN
     Route: 042
     Dates: start: 20220228, end: 20220228
  9. FLUOROURACIL [Suspect]
     Active Substance: FLUOROURACIL
     Indication: Oesophageal adenocarcinoma
     Dosage: DOSE UNKNOWN (BOLUS)
     Route: 040
     Dates: start: 20211201, end: 20220112
  10. FLUOROURACIL [Suspect]
     Active Substance: FLUOROURACIL
     Indication: Adenocarcinoma gastric
     Dosage: DOSE UNKNOWN
     Route: 042
     Dates: start: 20211201, end: 20220114
  11. FLUOROURACIL [Suspect]
     Active Substance: FLUOROURACIL
     Dosage: DOSE UNKNOWN (BOLUS)
     Route: 040
     Dates: start: 20220126, end: 20220126
  12. FLUOROURACIL [Suspect]
     Active Substance: FLUOROURACIL
     Dosage: DOSE UNKNOWN
     Route: 042
     Dates: start: 20220126, end: 20220128
  13. FLUOROURACIL [Suspect]
     Active Substance: FLUOROURACIL
     Dosage: DOSE UNKNOWN (BOLUS)
     Route: 040
     Dates: start: 20220228, end: 20220228
  14. FLUOROURACIL [Suspect]
     Active Substance: FLUOROURACIL
     Dosage: DOSE UNKNOWN
     Route: 042
     Dates: start: 20220228, end: 20220302
  15. TITANOREINE [CHONDRUS CRISPUS;LIDOCAINE;TITANIUM DIOXIDE;ZINC OXIDE] [Concomitant]
     Route: 061
     Dates: start: 20220126, end: 202202
  16. ONGLYZA [SAXAGLIPTIN HYDROCHLORIDE] [Concomitant]
     Route: 048
     Dates: start: 201101, end: 20220325
  17. PERINDOPRIL ARGININE [Concomitant]
     Active Substance: PERINDOPRIL ARGININE
     Route: 048
     Dates: start: 20211122, end: 20220125
  18. PERINDOPRIL ARGININE [Concomitant]
     Active Substance: PERINDOPRIL ARGININE
     Route: 048
     Dates: start: 20220126, end: 20220322
  19. ESOMEPRAZOLE MAGNESIUM [Concomitant]
     Active Substance: ESOMEPRAZOLE MAGNESIUM
     Route: 048
     Dates: start: 20211228
  20. METFORMIN [Concomitant]
     Active Substance: METFORMIN HYDROCHLORIDE
     Route: 048
     Dates: start: 201101
  21. GOMENOLEO [Concomitant]
     Dates: start: 20220126, end: 202202
  22. EMEND [Concomitant]
     Active Substance: APREPITANT
     Route: 048
     Dates: start: 20220126, end: 20220126

REACTIONS (1)
  - Dermatitis bullous [Recovered/Resolved with Sequelae]

NARRATIVE: CASE EVENT DATE: 20220201
